FAERS Safety Report 19228944 (Version 3)
Quarter: 2021Q3

REPORT INFORMATION
  Report Type: Report from Study
  Country: ES (occurrence: ES)
  Receive Date: 20210507
  Receipt Date: 20210922
  Transmission Date: 20211014
  Serious: Yes (Death, Hospitalization)
  Sender: FDA-Public Use
  Company Number: ES-ROCHE-2808251

PATIENT
  Age: 48 Year
  Sex: Female
  Weight: 107 kg

DRUGS (3)
  1. ATEZOLIZUMAB. [Suspect]
     Active Substance: ATEZOLIZUMAB
     Indication: TRIPLE NEGATIVE BREAST CANCER
     Dosage: ON 26/MAR/2021, SHE RECEIVED MOST RECENT DOSE OF ATEZOLIZUMAB (840 MG) PRIOR TO ONSET OF SERIOUS ADV
     Route: 041
     Dates: start: 20201030
  2. NAB?PACLITAXEL [Suspect]
     Active Substance: PACLITAXEL
     Indication: TRIPLE NEGATIVE BREAST CANCER
     Dosage: ON 05/APR/2021, SHE RECEIVED MOST RECENT DOSE OF PACLITAXEL ALBUMIN (100 MG/M2) PRIOR TO ONSET OF SE
     Route: 042
     Dates: start: 20201030
  3. UROKINASA [Concomitant]
     Dates: start: 20210326, end: 20210326

REACTIONS (1)
  - Pleuritic pain [Recovered/Resolved]

NARRATIVE: CASE EVENT DATE: 20210405
